FAERS Safety Report 7212462-5 (Version None)
Quarter: 2010Q4

REPORT INFORMATION
  Report Type: 
  Country: None (occurrence: None)
  Receive Date: 20101229
  Receipt Date: 20101215
  Transmission Date: 20110411
  Serious: Yes (Other)
  Sender: FDA-Public Use
  Company Number: GB-ACCORD-007396

PATIENT
  Age: 10 Year
  Sex: Male

DRUGS (1)
  1. TOPIRAMATE [Suspect]
     Indication: EPILEPSY
     Dosage: 75.00-MG-1.00PER/ORAL-1.0DAYS
     Route: 048

REACTIONS (2)
  - CONVULSION [None]
  - INCORRECT DRUG DOSAGE FORM ADMINISTERED [None]
